FAERS Safety Report 23395691 (Version 2)
Quarter: 2025Q1

REPORT INFORMATION
  Report Type: Spontaneous
  Country: US (occurrence: US)
  Receive Date: 20240112
  Receipt Date: 20250211
  Transmission Date: 20250408
  Serious: Yes (Hospitalization, Other)
  Sender: SANOFI AVENTIS
  Company Number: US-SA-SAC20240111001365

PATIENT
  Age: 44 Year
  Sex: Female

DRUGS (2)
  1. REZUROCK [Suspect]
     Active Substance: BELUMOSUDIL
     Indication: Acute lymphocytic leukaemia (in remission)
     Dosage: 200 MG, QD
     Route: 048
     Dates: start: 20221026
  2. XOSPATA [Concomitant]
     Active Substance: GILTERITINIB
     Dosage: 80 MG, QD

REACTIONS (7)
  - Hospitalisation [Unknown]
  - Pneumonia [Unknown]
  - Bronchitis [Unknown]
  - White blood cell count decreased [Unknown]
  - Blood immunoglobulin G decreased [Unknown]
  - Neutrophil count decreased [Unknown]
  - Product use in unapproved indication [Unknown]

NARRATIVE: CASE EVENT DATE: 20221026
